FAERS Safety Report 24055914 (Version 1)
Quarter: 2024Q3

REPORT INFORMATION
  Report Type: Report from Study
  Country: US (occurrence: US)
  Receive Date: 20240705
  Receipt Date: 20240705
  Transmission Date: 20241016
  Serious: Yes (Death, Hospitalization)
  Sender: BAYER
  Company Number: US-BAYER-2024A096499

PATIENT
  Age: 70 Year
  Sex: Female
  Weight: 91.61 kg

DRUGS (15)
  1. ADEMPAS [Suspect]
     Active Substance: RIOCIGUAT
     Indication: Pulmonary arterial hypertension
     Dosage: UNK
     Route: 048
     Dates: start: 20230124
  2. ADEMPAS [Suspect]
     Active Substance: RIOCIGUAT
     Indication: Pulmonary arterial hypertension
     Dosage: 2.5 MG, TID
     Route: 048
  3. VITAMIN C [Concomitant]
     Active Substance: ASCORBIC ACID
  4. TYLENOL EXTRA STRENGTH [Concomitant]
     Active Substance: ACETAMINOPHEN
  5. JARDIANCE [Concomitant]
     Active Substance: EMPAGLIFLOZIN
  6. TRELEGY ELLIPTA [Concomitant]
     Active Substance: FLUTICASONE FUROATE\UMECLIDINIUM BROMIDE\VILANTEROL TRIFENATATE
  7. LASIX [Concomitant]
     Active Substance: FUROSEMIDE
  8. VITAMIN D3 [Concomitant]
     Active Substance: CHOLECALCIFEROL
  9. OPSUMIT [Concomitant]
     Active Substance: MACITENTAN
  10. OXYGEN [Concomitant]
     Active Substance: OXYGEN
  11. ORENITRAM [Concomitant]
     Active Substance: TREPROSTINIL
  12. XARELTO [Concomitant]
     Active Substance: RIVAROXABAN
  13. TORSEMIDE [Concomitant]
     Active Substance: TORSEMIDE
  14. LOPERAMIDE [Concomitant]
     Active Substance: LOPERAMIDE
  15. AMIODARONE HYDROCHLORIDE [Concomitant]
     Active Substance: AMIODARONE HYDROCHLORIDE

REACTIONS (2)
  - Death [Fatal]
  - Hospitalisation [None]

NARRATIVE: CASE EVENT DATE: 20240628
